FAERS Safety Report 8228198-8 (Version None)
Quarter: 2012Q1

REPORT INFORMATION
  Report Type: 
  Country: None (occurrence: None)
  Receive Date: 20120322
  Receipt Date: 20120314
  Transmission Date: 20120608
  Serious: Yes (Hospitalization)
  Sender: FDA-Public Use
  Company Number: JP-UCBSA-021414

PATIENT
  Age: 5 Year
  Sex: Male
  Weight: 15.5 kg

DRUGS (16)
  1. LEVETIRACETAM [Suspect]
     Route: 048
     Dates: start: 20100803, end: 20101013
  2. LEVETIRACETAM [Suspect]
     Dosage: EVENING DOSE UNKNOWN
     Route: 048
     Dates: start: 20101013, end: 20101129
  3. PHENYTOIN [Concomitant]
     Indication: EPILEPSY
     Route: 048
     Dates: start: 20100401
  4. LEVETIRACETAM [Suspect]
     Indication: PARTIAL SEIZURES
     Route: 048
     Dates: start: 20100706, end: 20100721
  5. LEVETIRACETAM [Suspect]
     Route: 048
     Dates: start: 20100721, end: 20100803
  6. SULTIAME [Concomitant]
     Indication: EPILEPSY
     Route: 048
     Dates: start: 20100409
  7. LEVETIRACETAM [Suspect]
     Dosage: DAILY DOSE: 630 MG
     Route: 048
     Dates: start: 20110525, end: 20110620
  8. SULTIAME [Concomitant]
     Route: 048
     Dates: start: 20120106, end: 20120123
  9. PHENYTOIN [Concomitant]
     Route: 048
     Dates: start: 20100803
  10. LEVETIRACETAM [Suspect]
     Route: 048
     Dates: start: 20101130, end: 20110210
  11. SULTIAME [Concomitant]
     Route: 048
     Dates: start: 20110928, end: 20111125
  12. SULTIAME [Concomitant]
     Route: 048
     Dates: start: 20111125, end: 20120106
  13. LEVETIRACETAM [Suspect]
     Route: 048
     Dates: start: 20110210, end: 20110525
  14. SULTIAME [Concomitant]
     Dosage: DAILY DOSE: 75 MG
     Route: 048
     Dates: start: 20120123
  15. LEVETIRACETAM [Suspect]
     Dosage: DAILY DOSE: 675 MG
     Route: 048
     Dates: start: 20110621, end: 20111124
  16. LEVETIRACETAM [Suspect]
     Dosage: DAILY DOSE: 720 MG
     Route: 048
     Dates: start: 20111125

REACTIONS (2)
  - ACETONAEMIC VOMITING [None]
  - EPILEPSY [None]
